FAERS Safety Report 4826903-1 (Version None)
Quarter: 2005Q4

REPORT INFORMATION
  Report Type: 
  Country: None (occurrence: None)
  Receive Date: 20051014
  Receipt Date: 20050721
  Transmission Date: 20060501
  Serious: No
  Sender: FDA-Public Use
  Company Number: 2005SP001980

PATIENT
  Sex: Female
  Weight: 53.5244 kg

DRUGS (4)
  1. LUNESTA [Suspect]
     Indication: INSOMNIA
     Dosage: 3 MG;HS;ORAL, 6 MG;HS;ORAL
     Route: 048
     Dates: start: 20050701, end: 20050701
  2. LUNESTA [Suspect]
     Indication: INSOMNIA
     Dosage: 3 MG;HS;ORAL, 6 MG;HS;ORAL
     Route: 048
     Dates: start: 20050707, end: 20050701
  3. DESYREL [Concomitant]
  4. RESTORIL [Concomitant]

REACTIONS (2)
  - DRUG INEFFECTIVE [None]
  - INSOMNIA [None]
